FAERS Safety Report 11184507 (Version 1)
Quarter: 2015Q2

REPORT INFORMATION
  Report Type: Report from Study
  Country: DE (occurrence: DE)
  Receive Date: 20150612
  Receipt Date: 20150612
  Transmission Date: 20150821
  Serious: Yes (Hospitalization)
  Sender: FDA-Public Use
  Company Number: DE-ABBVIE-15K-062-1404847-00

PATIENT
  Sex: Female

DRUGS (1)
  1. HUMIRA [Suspect]
     Active Substance: ADALIMUMAB
     Indication: CROHN^S DISEASE
     Route: 058
     Dates: start: 2008

REACTIONS (6)
  - Fallopian tube cyst [Recovered/Resolved]
  - Salpingitis [Recovered/Resolved]
  - Uterine leiomyoma [Recovered/Resolved]
  - Endometrial atrophy [Recovered/Resolved]
  - Cervical dysplasia [Recovered/Resolved]
  - Cervicitis [Recovered/Resolved]
